FAERS Safety Report 16023458 (Version 1)
Quarter: 2019Q1

REPORT INFORMATION
  Report Type: Spontaneous
  Country: NL (occurrence: NL)
  Receive Date: 20190301
  Receipt Date: 20190301
  Transmission Date: 20190418
  Serious: Yes (Hospitalization)
  Sender: FDA-Public Use
  Company Number: NL-PFIZER INC-2019089669

PATIENT
  Age: 53 Year
  Sex: Female

DRUGS (1)
  1. CYKLOKAPRON [Suspect]
     Active Substance: TRANEXAMIC ACID
     Dosage: UNK

REACTIONS (3)
  - Haemodynamic instability [Unknown]
  - Myoclonus [Unknown]
  - Wrong product administered [Unknown]
